FAERS Safety Report 7002752-3 (Version None)
Quarter: 2010Q3

REPORT INFORMATION
  Report Type: 
  Country: None (occurrence: None)
  Receive Date: 20100920
  Receipt Date: 20100701
  Transmission Date: 20110219
  Serious: Yes (Hospitalization, Other)
  Sender: FDA-Public Use
  Company Number: US-ASTRAZENECA-2007UW21472

PATIENT
  Age: 29 Year
  Sex: Male
  Weight: 74.8 kg

DRUGS (10)
  1. SEROQUEL [Suspect]
     Indication: ANXIETY
     Route: 048
     Dates: start: 20060601, end: 20061101
  2. SEROQUEL [Suspect]
     Indication: DEPRESSION
     Route: 048
     Dates: start: 20060601, end: 20061101
  3. SEROQUEL [Suspect]
     Indication: BIPOLAR DISORDER
     Route: 048
     Dates: start: 20060601, end: 20061101
  4. SEROQUEL [Suspect]
     Dosage: 300MG-1200MG
     Route: 048
     Dates: start: 20060701, end: 20061106
  5. SEROQUEL [Suspect]
     Dosage: 300MG-1200MG
     Route: 048
     Dates: start: 20060701, end: 20061106
  6. SEROQUEL [Suspect]
     Dosage: 300MG-1200MG
     Route: 048
     Dates: start: 20060701, end: 20061106
  7. SEROQUEL [Suspect]
     Dosage: 300 MG 1 AT MORNING AND 4 AT NIGHT
     Route: 048
     Dates: start: 20060711
  8. SEROQUEL [Suspect]
     Dosage: 300 MG 1 AT MORNING AND 4 AT NIGHT
     Route: 048
     Dates: start: 20060711
  9. SEROQUEL [Suspect]
     Dosage: 300 MG 1 AT MORNING AND 4 AT NIGHT
     Route: 048
     Dates: start: 20060711
  10. ABILIFY [Concomitant]
     Dosage: 15-20 MG
     Route: 048
     Dates: start: 20060101

REACTIONS (12)
  - BLOOD CHOLESTEROL INCREASED [None]
  - BLOOD TRIGLYCERIDES INCREASED [None]
  - DIABETES MELLITUS [None]
  - DIABETIC COMA [None]
  - DIABETIC COMPLICATION [None]
  - DIABETIC KETOACIDOSIS [None]
  - GLUCOSE TOLERANCE IMPAIRED [None]
  - HYPERLIPIDAEMIA [None]
  - HYPOGLYCAEMIA [None]
  - RENAL FAILURE ACUTE [None]
  - TYPE 1 DIABETES MELLITUS [None]
  - TYPE 2 DIABETES MELLITUS [None]
